FAERS Safety Report 6899863-X (Version None)
Quarter: 2010Q3

REPORT INFORMATION
  Report Type: 
  Country: None (occurrence: None)
  Receive Date: 20100803
  Receipt Date: 20100721
  Transmission Date: 20110219
  Serious: Yes (Hospitalization)
  Sender: FDA-Public Use
  Company Number: CO-ELI_LILLY_AND_COMPANY-CO201007006817

PATIENT
  Age: 76 Year
  Sex: Female

DRUGS (7)
  1. FORTEO [Suspect]
     Indication: OSTEOPOROSIS
     Dosage: 20 UG, DAILY (1/D)
     Route: 058
     Dates: start: 20100618, end: 20100626
  2. ESOMEPRAZOL                        /01479301/ [Concomitant]
  3. METOPROLOL [Concomitant]
  4. LOSARTAN POSTASSIUM [Concomitant]
  5. SULCRATE [Concomitant]
  6. PLASIL /00041901/ [Concomitant]
  7. OLANZAPINE [Concomitant]

REACTIONS (4)
  - ELECTROLYTE DEPLETION [None]
  - PLEURAL HAEMORRHAGE [None]
  - RENAL FAILURE ACUTE [None]
  - URINARY TRACT INFECTION [None]
